FAERS Safety Report 19154230 (Version 1)
Quarter: 2021Q2

REPORT INFORMATION
  Report Type: Report from Study
  Country: BR (occurrence: BR)
  Receive Date: 20210419
  Receipt Date: 20210419
  Transmission Date: 20210717
  Serious: Yes (Life-Threatening, Other)
  Sender: FDA-Public Use
  Company Number: NVSC2021BR086953

PATIENT
  Sex: Female

DRUGS (6)
  1. TAMOXIFEN [Concomitant]
     Active Substance: TAMOXIFEN
     Indication: PRODUCT USED FOR UNKNOWN INDICATION
     Dosage: UNK
     Route: 065
     Dates: start: 2007
  2. FULVESTRANT. [Suspect]
     Active Substance: FULVESTRANT
     Indication: HER2 NEGATIVE BREAST CANCER
     Dosage: UNK
     Route: 065
     Dates: start: 2007
  3. FULVESTRANT. [Suspect]
     Active Substance: FULVESTRANT
     Dosage: UNK
     Route: 065
     Dates: start: 2014
  4. FULVESTRANT. [Suspect]
     Active Substance: FULVESTRANT
     Dosage: UNK
     Route: 065
     Dates: start: 2018
  5. LETROZOLE. [Suspect]
     Active Substance: LETROZOLE
     Indication: HER2 NEGATIVE BREAST CANCER
     Route: 065
  6. ANASTROZOLE. [Suspect]
     Active Substance: ANASTROZOLE
     Indication: HER2 NEGATIVE BREAST CANCER
     Route: 065

REACTIONS (23)
  - Osteonecrosis [Unknown]
  - Laboratory test abnormal [Unknown]
  - Malaise [Unknown]
  - Extrasystoles [Unknown]
  - Ovarian cyst [Unknown]
  - Hypersensitivity [Unknown]
  - Lymphadenopathy [Unknown]
  - Varicose vein [Unknown]
  - Skin papilloma [Unknown]
  - Adverse drug reaction [Unknown]
  - Feeling abnormal [Unknown]
  - Neuropathy peripheral [Recovered/Resolved]
  - Metastases to bone [Unknown]
  - Pain [Unknown]
  - Pain in extremity [Unknown]
  - Metastases to skin [Unknown]
  - Pyrexia [Unknown]
  - Tumour marker increased [Unknown]
  - Weight increased [Unknown]
  - Neoplasm [Unknown]
  - Bone disorder [Unknown]
  - Erythema [Unknown]
  - Drug ineffective [Unknown]

NARRATIVE: CASE EVENT DATE: 2007
